FAERS Safety Report 6890740-7 (Version None)
Quarter: 2010Q3

REPORT INFORMATION
  Report Type: 
  Country: None (occurrence: None)
  Receive Date: 20100731
  Receipt Date: 20090310
  Transmission Date: 20110219
  Serious: No
  Sender: FDA-Public Use
  Company Number: US-PFIZER INC-2009159253

PATIENT
  Sex: Female
  Weight: 99.773 kg

DRUGS (3)
  1. LIPITOR [Suspect]
     Indication: HYPERLIPIDAEMIA
     Dosage: 40 MG, 1X/DAY
     Dates: start: 20080101
  2. DIOVANE [Concomitant]
     Dosage: UNK
  3. PLAVIX [Concomitant]
     Dosage: UNK

REACTIONS (5)
  - ARTHRITIS [None]
  - GAIT DISTURBANCE [None]
  - MYALGIA [None]
  - NOCTURIA [None]
  - PAIN IN EXTREMITY [None]
